FAERS Safety Report 4882296-5 (Version None)
Quarter: 2006Q1

REPORT INFORMATION
  Report Type: 
  Country: None (occurrence: None)
  Receive Date: 20060112
  Receipt Date: 20060103
  Transmission Date: 20060701
  Serious: Yes (Hospitalization, Other)
  Sender: FDA-Public Use
  Company Number: 2005156154

PATIENT
  Age: 41 Year
  Sex: Female
  Weight: 127.0072 kg

DRUGS (4)
  1. GEODON [Suspect]
     Indication: SCHIZOPHRENIA
     Dosage: ORAL
     Route: 048
     Dates: start: 20050101
  2. ACTOS [Concomitant]
  3. COGENTIN [Concomitant]
  4. ZYPREXA [Concomitant]

REACTIONS (11)
  - CONDITION AGGRAVATED [None]
  - DIARRHOEA [None]
  - GASTRIC DISORDER [None]
  - HAEMATEMESIS [None]
  - HYPERTENSION [None]
  - MEMORY IMPAIRMENT [None]
  - MENTAL DISORDER [None]
  - NAUSEA [None]
  - RENAL DISORDER [None]
  - VOMITING [None]
  - WEIGHT INCREASED [None]
